FAERS Safety Report 5445176-2 (Version None)
Quarter: 2007Q3

REPORT INFORMATION
  Report Type: 
  Country: None (occurrence: None)
  Receive Date: 20070730
  Receipt Date: 20070418
  Transmission Date: 20080115
  Serious: Yes (Hospitalization)
  Sender: FDA-Public Use
  Company Number: 240148

PATIENT
  Age: 50 Year
  Sex: Female

DRUGS (2)
  1. RITUXAN [Suspect]
     Indication: IDIOPATHIC THROMBOCYTOPENIC PURPURA
     Dosage: 660 MG, 1/WEEK, INTRAVENOUS
     Route: 042
     Dates: start: 20070226, end: 20070319
  2. STEROIDS NOS (STEROIDS NOS) [Concomitant]

REACTIONS (2)
  - HEPATITIS CHOLESTATIC [None]
  - PNEUMONIA [None]
